FAERS Safety Report 9260066 (Version 2)
Quarter: 2013Q2

REPORT INFORMATION
  Report Type: Spontaneous
  Country: DE (occurrence: DE)
  Receive Date: 20130429
  Receipt Date: 20130612
  Transmission Date: 20140414
  Serious: Yes (Other)
  Sender: FDA-Public Use
  Company Number: DE-JNJFOC-20130410466

PATIENT
  Sex: Female
  Weight: 57 kg

DRUGS (6)
  1. RISPERDAL [Suspect]
     Indication: PRODUCT USED FOR UNKNOWN INDICATION
     Route: 048
  2. NOVALGIN [Suspect]
     Indication: PRODUCT USED FOR UNKNOWN INDICATION
     Dosage: 5000 MG/ UNKNOWN IF THE COMPLETE DOSE WAS TAKEN
     Route: 048
  3. MCP [Suspect]
     Indication: PRODUCT USED FOR UNKNOWN INDICATION
     Dosage: 75 MG/ UNKNOWN IF THE COMPLETE DOSE WAS TAKEN
     Route: 048
  4. IBU [Suspect]
     Indication: PRODUCT USED FOR UNKNOWN INDICATION
     Dosage: IBU 600- 3 TABLETS, 600 MG/ UNKNOWN IF THE COMPLETE DOSE WAS TAKEN
     Route: 048
  5. IBU [Suspect]
     Indication: PRODUCT USED FOR UNKNOWN INDICATION
     Dosage: IBU 400- 3 TABLETS, 1200 MG/ UNKNOWN IF THE COMPLETE DOSE WAS TAKEN
     Route: 048
  6. VIVINOX N [Suspect]
     Indication: PRODUCT USED FOR UNKNOWN INDICATION
     Route: 048

REACTIONS (3)
  - Suicide attempt [Unknown]
  - Hypotension [Unknown]
  - Intentional drug misuse [Unknown]
